FAERS Safety Report 6905023-6 (Version None)
Quarter: 2010Q3

REPORT INFORMATION
  Report Type: 
  Country: None (occurrence: None)
  Receive Date: 20100804
  Receipt Date: 20090824
  Transmission Date: 20110219
  Serious: No
  Sender: FDA-Public Use
  Company Number: US-PFIZER INC-2009227533

PATIENT
  Sex: Male

DRUGS (1)
  1. LYRICA [Suspect]
     Dosage: UNK

REACTIONS (5)
  - ENAMEL ANOMALY [None]
  - GINGIVAL HYPOPLASIA [None]
  - MEMORY IMPAIRMENT [None]
  - MIGRAINE [None]
  - TEETH BRITTLE [None]
